FAERS Safety Report 15698931 (Version 2)
Quarter: 2018Q4

REPORT INFORMATION
  Report Type: Other
  Country: US (occurrence: US)
  Receive Date: 20181207
  Receipt Date: 20181217
  Transmission Date: 20190205
  Serious: Yes (Hospitalization)
  Sender: FDA-Public Use
  Company Number: US-ACORDA-ACO_155788_2018

PATIENT
  Sex: Female

DRUGS (1)
  1. AMPYRA [Suspect]
     Active Substance: DALFAMPRIDINE
     Indication: PRODUCT USED FOR UNKNOWN INDICATION
     Dosage: 10 MILLIGRAM, BID
     Route: 048

REACTIONS (3)
  - Fatigue [Unknown]
  - Aggression [Unknown]
  - Multiple sclerosis relapse [Unknown]
